FAERS Safety Report 6603892-0 (Version None)
Quarter: 2010Q1

REPORT INFORMATION
  Report Type: 
  Country: None (occurrence: None)
  Receive Date: 20100226
  Receipt Date: 20090324
  Transmission Date: 20100710
  Serious: No
  Sender: FDA-Public Use
  Company Number: A0772523A

PATIENT
  Age: 51 Year
  Sex: Male

DRUGS (3)
  1. LAMICTAL CD [Suspect]
     Indication: BIPOLAR DISORDER
     Dosage: 400TAB PER DAY
     Route: 048
     Dates: start: 20090226, end: 20090308
  2. MIRTAZAPINE [Concomitant]
  3. WELLBUTRIN XL [Concomitant]
     Route: 048

REACTIONS (4)
  - INFLUENZA LIKE ILLNESS [None]
  - NAUSEA [None]
  - PAIN [None]
  - PRODUCT QUALITY ISSUE [None]
